FAERS Safety Report 19423424 (Version 1)
Quarter: 2021Q2

REPORT INFORMATION
  Report Type: Spontaneous
  Country: US (occurrence: US)
  Receive Date: 20210616
  Receipt Date: 20210616
  Transmission Date: 20210717
  Serious: No
  Sender: FDA-Public Use
  Company Number: US-ASTRAZENECA-2021A458760

PATIENT
  Age: 18917 Day
  Sex: Female
  Weight: 90.7 kg

DRUGS (1)
  1. BYDUREON BCISE [Suspect]
     Active Substance: EXENATIDE
     Route: 065

REACTIONS (10)
  - Illness [Unknown]
  - Middle insomnia [Unknown]
  - Vomiting [Unknown]
  - Feeling abnormal [Unknown]
  - Device leakage [Unknown]
  - Diarrhoea [Unknown]
  - Malaise [Unknown]
  - Vision blurred [Unknown]
  - Nausea [Unknown]
  - Product dose omission issue [Unknown]

NARRATIVE: CASE EVENT DATE: 20210517
